FAERS Safety Report 7354388-2 (Version None)
Quarter: 2011Q1

REPORT INFORMATION
  Report Type: 
  Country: None (occurrence: None)
  Receive Date: 20110316
  Receipt Date: 20110301
  Transmission Date: 20110831
  Serious: Yes (Hospitalization)
  Sender: FDA-Public Use
  Company Number: PHHY2011US17024

PATIENT
  Age: 80 Year
  Sex: Female

DRUGS (2)
  1. RECLAST [Suspect]
     Dosage: UNK
  2. PREDNISONE [Concomitant]
     Dosage: UNK

REACTIONS (3)
  - GAIT DISTURBANCE [None]
  - FALL [None]
  - LUNG INFECTION [None]
